FAERS Safety Report 18853547 (Version 1)
Quarter: 2021Q1

REPORT INFORMATION
  Report Type: Spontaneous
  Country: DE (occurrence: DE)
  Receive Date: 20210205
  Receipt Date: 20210205
  Transmission Date: 20210420
  Serious: Yes (Other)
  Sender: FDA-Public Use
  Company Number: DE-MYLANLABS-2021M1006958

PATIENT
  Age: 5 Month
  Sex: Male
  Weight: 2.61 kg

DRUGS (2)
  1. PRESINOL [Suspect]
     Active Substance: METHYLDOPA
     Indication: HYPERTENSION
     Dosage: 500 [MG/D ] 2 SEPARATED DOSES
     Route: 064
     Dates: start: 20190930, end: 20200705
  2. BISOPROLOL [Suspect]
     Active Substance: BISOPROLOL
     Indication: TACHYCARDIA
     Dosage: 2.5 [MG/D ] 2 SEPARATED DOSES
     Route: 064
     Dates: start: 20190930, end: 20200705

REACTIONS (2)
  - Foetal exposure during pregnancy [Recovered/Resolved]
  - Small for dates baby [Recovered/Resolved]
